FAERS Safety Report 5827718-8 (Version None)
Quarter: 2008Q3

REPORT INFORMATION
  Report Type: 
  Country: None (occurrence: None)
  Receive Date: 20080730
  Receipt Date: 20080715
  Transmission Date: 20090109
  Serious: Yes (Hospitalization)
  Sender: FDA-Public Use
  Company Number: GB-AMGEN-UK292098

PATIENT
  Sex: Male

DRUGS (9)
  1. PANITUMUMAB [Suspect]
     Dates: start: 20080603
  2. EPIRUBICIN [Suspect]
     Indication: GASTROOESOPHAGEAL CANCER
  3. OXALIPLATIN [Suspect]
  4. CAPECITABINE [Suspect]
  5. LEVOPROME [Concomitant]
  6. ONDANSETRON [Concomitant]
  7. POTASSIUM CHLORIDE [Concomitant]
  8. MEBEVERINE HYDROCHLORIDE [Concomitant]
  9. METOCLOPRAMIDE [Concomitant]

REACTIONS (5)
  - DIARRHOEA [None]
  - INFECTION [None]
  - NAUSEA [None]
  - NEUTROPENIA [None]
  - PYREXIA [None]
